FAERS Safety Report 22601481 (Version 5)
Quarter: 2023Q4

REPORT INFORMATION
  Report Type: Report from Study
  Country: DE (occurrence: DE)
  Receive Date: 20230614
  Receipt Date: 20231031
  Transmission Date: 20240110
  Serious: Yes (Other)
  Sender: FDA-Public Use
  Company Number: DE-002147023-NVSC2022DE302831

PATIENT
  Age: 7 Year
  Sex: Male
  Weight: 38.8 kg

DRUGS (12)
  1. ILARIS [Suspect]
     Active Substance: CANAKINUMAB
     Indication: Familial mediterranean fever
     Dosage: 150 MG, Q3W
     Route: 058
     Dates: start: 20181203
  2. ILARIS [Suspect]
     Active Substance: CANAKINUMAB
     Dosage: 150 MG
     Route: 058
     Dates: start: 20220427
  3. ILARIS [Suspect]
     Active Substance: CANAKINUMAB
     Dosage: 150 MG
     Route: 058
     Dates: start: 20230224
  4. ILARIS [Suspect]
     Active Substance: CANAKINUMAB
     Dosage: 150 MG
     Route: 058
     Dates: start: 20221130
  5. ILARIS [Suspect]
     Active Substance: CANAKINUMAB
     Dosage: 150 MG
     Route: 058
     Dates: start: 20230105
  6. OMEPRAZOLE [Concomitant]
     Active Substance: OMEPRAZOLE
     Indication: Prophylaxis against gastrointestinal ulcer
     Dosage: 20 MG, BID
     Route: 048
     Dates: start: 20211020
  7. FERRO-SANOL DUODENAL [Concomitant]
     Active Substance: FERROUS GLYCINE SULFATE
     Indication: Iron deficiency
     Dosage: 75 MG, QD
     Route: 048
     Dates: start: 20150101
  8. VITAMIN D3 [Concomitant]
     Active Substance: CHOLECALCIFEROL
     Indication: Familial mediterranean fever
     Dosage: 1000 IU, QD
     Route: 048
     Dates: start: 20101201
  9. VITAMIN D3 [Concomitant]
     Active Substance: CHOLECALCIFEROL
     Dosage: 999 IU, QD
     Route: 048
     Dates: start: 20101201
  10. IBUPROFEN [Concomitant]
     Active Substance: IBUPROFEN
     Indication: Familial mediterranean fever
     Dosage: 300 MG, BID
     Route: 048
     Dates: start: 20211201
  11. COLCHICINE [Concomitant]
     Active Substance: COLCHICINE
     Indication: Familial mediterranean fever
     Dosage: 0.5 MG, BID
     Route: 048
     Dates: start: 20191119
  12. COLCHICINE [Concomitant]
     Active Substance: COLCHICINE
     Dosage: 0.5 MG, TID
     Route: 048
     Dates: start: 20221005

REACTIONS (4)
  - Leukopenia [Recovered/Resolved]
  - Urine protein/creatinine ratio increased [Recovering/Resolving]
  - Streptococcal infection [Recovered/Resolved]
  - Streptococcal infection [Recovered/Resolved]

NARRATIVE: CASE EVENT DATE: 20220511
